FAERS Safety Report 7640085-2 (Version None)
Quarter: 2011Q3

REPORT INFORMATION
  Report Type: 
  Country: None (occurrence: None)
  Receive Date: 20110727
  Receipt Date: 20110714
  Transmission Date: 20111222
  Serious: Yes (Hospitalization)
  Sender: FDA-Public Use
  Company Number: US-ELI_LILLY_AND_COMPANY-US201105007847

PATIENT
  Sex: Female

DRUGS (20)
  1. FORTEO [Suspect]
     Dosage: 20 UG, QD
  2. LIOTHYRONINE SODIUM [Concomitant]
  3. ALBUTEROL SULFATE AUTOHALER [Concomitant]
  4. OMEPRAZOLE [Concomitant]
  5. COMBIVENT [Concomitant]
  6. METHOTREXATE [Concomitant]
  7. FORTEO [Suspect]
     Indication: OSTEOPOROSIS
     Dosage: 20 UG, QD
     Dates: start: 20110523
  8. RAMIPRIL [Concomitant]
  9. MULTI-VITAMIN [Concomitant]
  10. POTASSIUM [Concomitant]
  11. FENTANYL [Concomitant]
     Dosage: 25 UG, OTHER
     Route: 062
  12. AMLODIPINE [Concomitant]
  13. HYDROXYCHLOROQUINE SULFATE [Concomitant]
  14. LEVOTHYROXINE SODIUM [Concomitant]
  15. ADVAIR DISKUS 100/50 [Concomitant]
  16. CALCIUM +VIT D [Concomitant]
  17. VITAMIN D [Concomitant]
  18. GABAPENTIN [Concomitant]
  19. FOLIC ACID [Concomitant]
  20. LASIX [Concomitant]

REACTIONS (10)
  - MUSCULAR WEAKNESS [None]
  - NAUSEA [None]
  - MALAISE [None]
  - CYSTOCELE [None]
  - FEELING ABNORMAL [None]
  - ABDOMINAL DISCOMFORT [None]
  - FEAR [None]
  - BLADDER PROLAPSE [None]
  - TREMOR [None]
  - DRUG INTERACTION [None]
